FAERS Safety Report 17469589 (Version 6)
Quarter: 2020Q1

REPORT INFORMATION
  Report Type: Report from Study
  Country: ES (occurrence: ES)
  Receive Date: 20200227
  Receipt Date: 20200326
  Transmission Date: 20200409
  Serious: Yes (Hospitalization)
  Sender: FDA-Public Use
  Company Number: ES-PFIZER INC-2020071331

PATIENT
  Age: 68 Year
  Sex: Male
  Weight: 66 kg

DRUGS (15)
  1. PEMBROLIZUMAB. [Suspect]
     Active Substance: PEMBROLIZUMAB
     Indication: RENAL CELL CARCINOMA
     Dosage: 200 MG, EVERY 3 WEEKS (VOLUME OF INFUSION: 58 ML)
     Route: 042
     Dates: start: 20171110, end: 20200102
  2. SEVREDOL [Concomitant]
     Active Substance: MORPHINE
     Dosage: 20 MG, UNK
     Dates: start: 201711
  3. VENOSMIL [HIDROSMIN] [Concomitant]
     Dosage: 6.4 MG, UNK
     Dates: start: 20180605
  4. OMEPRAZOLE. [Concomitant]
     Active Substance: OMEPRAZOLE
     Dosage: 20 MG, UNK
     Dates: start: 20190206
  5. CLEXANE [Concomitant]
     Active Substance: ENOXAPARIN SODIUM
     Dosage: 40 MG, UNK
     Dates: start: 20190806
  6. PEMBROLIZUMAB. [Suspect]
     Active Substance: PEMBROLIZUMAB
     Dosage: 200 MG, EVERY 3 WEEKS (CYCLE 33)
     Route: 042
     Dates: start: 20200123, end: 20200123
  7. AMLODIPINE [Concomitant]
     Active Substance: AMLODIPINE BESYLATE
     Dosage: 5 MG, UNK
     Dates: start: 20181116
  8. INSULIN ACTRAPID HUMAN [Concomitant]
     Dosage: 1 IU, UNK
     Dates: start: 20190806
  9. LANTUS [Concomitant]
     Active Substance: INSULIN GLARGINE
     Indication: HYPERGLYCAEMIA
     Dosage: 12 IU, UNK
     Dates: start: 20190910, end: 20200202
  10. AXITINIB [Suspect]
     Active Substance: AXITINIB
     Indication: RENAL CELL CARCINOMA
     Dosage: 5 MG, 2X/DAY (FLUCTUATED DOSAGE)
     Route: 048
     Dates: start: 20171110, end: 20200123
  11. AXITINIB [Suspect]
     Active Substance: AXITINIB
     Dosage: 5 MG, 2X/DAY (CYCLE 33)
     Route: 048
     Dates: start: 20200124, end: 20200202
  12. VESOMNI [Concomitant]
     Active Substance: SOLIFENACIN\TAMSULOSIN
     Dosage: 1 DF, UNK
     Dates: start: 20180620
  13. FOSFOMYCIN [Concomitant]
     Active Substance: FOSFOMYCIN
     Dosage: 1 DF, UNK
     Dates: start: 20191220, end: 20200221
  14. METFORMIN [Concomitant]
     Active Substance: METFORMIN HYDROCHLORIDE
     Dosage: 850 MG, UNK
     Dates: start: 20200103
  15. PANTOPRAZOLE [Concomitant]
     Active Substance: PANTOPRAZOLE
     Dosage: 40 MG, UNK
     Dates: start: 20180521

REACTIONS (1)
  - Hepatitis [Recovered/Resolved]

NARRATIVE: CASE EVENT DATE: 20200202
